FAERS Safety Report 4734769-3 (Version None)
Quarter: 2005Q3

REPORT INFORMATION
  Report Type: 
  Country: None (occurrence: None)
  Receive Date: 20050804
  Receipt Date: 20050726
  Transmission Date: 20060218
  Serious: Yes (Hospitalization)
  Sender: FDA-Public Use
  Company Number: FR-GLAXOSMITHKLINE-B0388813A

PATIENT
  Age: 77 Year
  Sex: Female

DRUGS (5)
  1. AUGMENTIN '125' [Suspect]
     Indication: INFECTION
     Dosage: 1G THREE TIMES PER DAY
     Route: 042
     Dates: start: 20050304, end: 20050314
  2. PREVISCAN 20 [Suspect]
     Indication: ATRIAL FIBRILLATION
     Route: 048
     Dates: start: 20050307, end: 20050309
  3. LASILIX 40 MG [Concomitant]
     Indication: ESSENTIAL HYPERTENSION
     Dosage: 1TAB PER DAY
     Route: 048
  4. CORDARONE [Concomitant]
     Dosage: 2TAB PER DAY
     Route: 048
  5. AMLODIPINE BESYLATE [Concomitant]
     Indication: ESSENTIAL HYPERTENSION
     Dosage: 1UNIT PER DAY
     Route: 048

REACTIONS (4)
  - DRUG INTERACTION [None]
  - HAEMATOMA [None]
  - INTERNATIONAL NORMALISED RATIO ABNORMAL [None]
  - INTERNATIONAL NORMALISED RATIO INCREASED [None]
